FAERS Safety Report 7130286-4 (Version None)
Quarter: 2010Q4

REPORT INFORMATION
  Report Type: 
  Country: None (occurrence: None)
  Receive Date: 20101201
  Receipt Date: 20101123
  Transmission Date: 20110411
  Serious: Yes (Hospitalization, Other)
  Sender: FDA-Public Use
  Company Number: FR-PFIZER INC-2010161020

PATIENT
  Age: 28 Year
  Sex: Female

DRUGS (1)
  1. ATARAX [Suspect]
     Indication: SLEEP DISORDER
     Dosage: 25 MG, AT EVENING
     Route: 048
     Dates: start: 20100901

REACTIONS (2)
  - CAESAREAN SECTION [None]
  - GESTATIONAL HYPERTENSION [None]
